FAERS Safety Report 7233769-1 (Version None)
Quarter: 2011Q1

REPORT INFORMATION
  Report Type: 
  Country: None (occurrence: None)
  Receive Date: 20110119
  Receipt Date: 20110114
  Transmission Date: 20110831
  Serious: Yes (Death, Hospitalization, Other)
  Sender: FDA-Public Use
  Company Number: FR-B.I. PHARMACEUTICALS,INC./RIDGEFIELD-2011-FF-00028FF

PATIENT
  Sex: Female

DRUGS (7)
  1. MOBIC [Suspect]
     Indication: ARTHRALGIA
     Dosage: 15 MG/1.5 ML
     Route: 030
     Dates: start: 20100511, end: 20100516
  2. MOBIC [Suspect]
     Dosage: 15 MG/1.5 ML
     Route: 030
     Dates: start: 20100519, end: 20100522
  3. SIMVASTATIN [Concomitant]
  4. VASTAREL [Concomitant]
  5. NEBIVOLOL HCL [Concomitant]
  6. COTARERG [Concomitant]
  7. STILNOX [Concomitant]

REACTIONS (11)
  - VIITH NERVE PARALYSIS [None]
  - ANXIETY [None]
  - MUTISM [None]
  - HYPERTENSION [None]
  - COGNITIVE DISORDER [None]
  - HALLUCINATION [None]
  - HYPONATRAEMIA [None]
  - PULMONARY EMBOLISM [None]
  - DELIRIUM [None]
  - DEEP VEIN THROMBOSIS [None]
  - DISSEMINATED INTRAVASCULAR COAGULATION [None]
